FAERS Safety Report 8291928-3 (Version None)
Quarter: 2012Q2

REPORT INFORMATION
  Report Type: 
  Country: None (occurrence: None)
  Receive Date: 20120417
  Receipt Date: 20110314
  Transmission Date: 20120825
  Serious: No
  Sender: FDA-Public Use
  Company Number: US-ASTRAZENECA-2011SE14686

PATIENT
  Sex: Female

DRUGS (1)
  1. NEXIUM [Suspect]
     Route: 048

REACTIONS (10)
  - OEDEMA [None]
  - OSTEOARTHRITIS [None]
  - RALES [None]
  - PAIN IN EXTREMITY [None]
  - ARTHRALGIA [None]
  - GASTROOESOPHAGEAL REFLUX DISEASE [None]
  - MULTIPLE ALLERGIES [None]
  - BRONCHITIS [None]
  - FIBROMYALGIA [None]
  - ABDOMINAL PAIN UPPER [None]
